APPROVED DRUG PRODUCT: KERENDIA
Active Ingredient: FINERENONE
Strength: 40MG
Dosage Form/Route: TABLET;ORAL
Application: N215341 | Product #003
Applicant: BAYER HEALTHCARE PHARMACEUTICALS INC
Approved: Jul 11, 2025 | RLD: Yes | RS: No | Type: RX

PATENTS:
Patent RE49826 | Expires: Jul 29, 2035
Patent 8436180 | Expires: Aug 26, 2033

EXCLUSIVITY:
Code: NCE | Date: Jul 9, 2026
Code: NS | Date: Jul 11, 2028